FAERS Safety Report 19884549 (Version 1)
Quarter: 2021Q3

REPORT INFORMATION
  Report Type: Spontaneous
  Country: US (occurrence: US)
  Receive Date: 20210924
  Receipt Date: 20210924
  Transmission Date: 20211014
  Serious: Yes (Hospitalization)
  Sender: FDA-Public Use
  Company Number: None

PATIENT
  Sex: Male
  Weight: 90 kg

DRUGS (1)
  1. CISPLATIN 200 MG [Suspect]
     Active Substance: CISPLATIN
     Dates: end: 20130903

REACTIONS (4)
  - Dysphagia [None]
  - Syncope [None]
  - Aspiration [None]
  - Lung infiltration [None]

NARRATIVE: CASE EVENT DATE: 20210620
